FAERS Safety Report 20044572 (Version 1)
Quarter: 2021Q4

REPORT INFORMATION
  Report Type: Spontaneous
  Country: JP (occurrence: JP)
  Receive Date: 20211108
  Receipt Date: 20211108
  Transmission Date: 20220304
  Serious: Yes (Hospitalization)
  Sender: FDA-Public Use
  Company Number: JP-PFIZER INC-202101441319

PATIENT
  Age: 45 Year
  Sex: Male

DRUGS (1)
  1. PREGABALIN [Suspect]
     Active Substance: PREGABALIN
     Dosage: 5400 MG, SINGLE

REACTIONS (3)
  - Overdose [Unknown]
  - Loss of consciousness [Unknown]
  - Dysarthria [Unknown]
